FAERS Safety Report 5251886-2 (Version None)
Quarter: 2007Q1

REPORT INFORMATION
  Report Type: 
  Country: None (occurrence: None)
  Receive Date: 20070223
  Receipt Date: 20070212
  Transmission Date: 20070707
  Serious: Yes (Hospitalization)
  Sender: FDA-Public Use
  Company Number: FSC_0063_2007

PATIENT
  Age: 77 Year
  Sex: Female

DRUGS (1)
  1. ISOPTIN [Suspect]
     Indication: SUPRAVENTRICULAR TACHYCARDIA
     Dosage: DF UNK PO
     Route: 048
     Dates: start: 20070108, end: 20070119

REACTIONS (1)
  - CYTOLYTIC HEPATITIS [None]
